FAERS Safety Report 18893093 (Version 1)
Quarter: 2021Q1

REPORT INFORMATION
  Report Type: Spontaneous
  Country: PH (occurrence: PH)
  Receive Date: 20210215
  Receipt Date: 20210215
  Transmission Date: 20210420
  Serious: Yes (Hospitalization)
  Sender: FDA-Public Use
  Company Number: PH-ENDO PHARMACEUTICALS INC-2021-000966

PATIENT

DRUGS (1)
  1. COLY?MYCIN M [Suspect]
     Active Substance: COLISTIMETHATE SODIUM
     Indication: PATHOGEN RESISTANCE
     Dosage: UNK UNKNOWN, UNKNOWN
     Route: 042

REACTIONS (1)
  - Bartter^s syndrome [Unknown]
